FAERS Safety Report 5052754-1 (Version None)
Quarter: 2006Q3

REPORT INFORMATION
  Report Type: 
  Country: None (occurrence: None)
  Receive Date: 20060717
  Receipt Date: 20060524
  Transmission Date: 20061208
  Serious: Yes (Hospitalization)
  Sender: FDA-Public Use
  Company Number: FR-ROCHE-449702

PATIENT
  Age: 69 Year
  Sex: Female
  Weight: 64 kg

DRUGS (8)
  1. XENICAL [Suspect]
     Indication: DRUG USE FOR UNKNOWN INDICATION
     Route: 048
  2. MEDIATOR 150 [Concomitant]
  3. MIANSERINE [Concomitant]
  4. ASPIRIN [Concomitant]
     Dosage: REPORTED AS KARDEGIC 75.
  5. TRIATEC [Concomitant]
  6. NEXEN [Concomitant]
  7. CODOLIPRANE [Concomitant]
  8. OMEPRAZOLE [Concomitant]
     Dosage: REPORTED AS OMEPRAZOLE 20.

REACTIONS (3)
  - ANGIONEUROTIC OEDEMA [None]
  - HYPERSENSITIVITY [None]
  - OEDEMA PERIPHERAL [None]
